FAERS Safety Report 6135139-6 (Version None)
Quarter: 2009Q1

REPORT INFORMATION
  Report Type: 
  Country: None (occurrence: None)
  Receive Date: 20090327
  Receipt Date: 20090319
  Transmission Date: 20090719
  Serious: Yes (Other)
  Sender: FDA-Public Use
  Company Number: ES-MERCK-0903ESP00046

PATIENT
  Sex: Female

DRUGS (5)
  1. ISENTRESS [Suspect]
     Route: 048
  2. KIVEXA [Concomitant]
     Route: 065
  3. RITONAVIR [Concomitant]
     Route: 065
  4. HALOPERIDOL [Concomitant]
     Route: 065
  5. [THERAPY UNSPECIFIED] [Suspect]
     Indication: SCHIZOPHRENIA
     Route: 065

REACTIONS (2)
  - DRUG INTERACTION [None]
  - POLYARTERITIS NODOSA [None]
